FAERS Safety Report 9540627 (Version 1)
Quarter: 2013Q3

REPORT INFORMATION
  Report Type: Spontaneous
  Country: GB (occurrence: GB)
  Receive Date: 20130920
  Receipt Date: 20130920
  Transmission Date: 20140515
  Serious: Yes (Other)
  Sender: FDA-Public Use
  Company Number: PHHY2013GB102368

PATIENT
  Age: 69 Year
  Sex: Female

DRUGS (2)
  1. AZITHROMYCIN [Suspect]
  2. ORENCIA [Suspect]
     Dosage: 125 MG, WEEKLY

REACTIONS (1)
  - Cellulitis [Unknown]
